FAERS Safety Report 9291314 (Version 1)
Quarter: 2013Q2

REPORT INFORMATION
  Report Type: Spontaneous
  Country: IT (occurrence: None)
  Receive Date: 20130513
  Receipt Date: 20130513
  Transmission Date: 20140414
  Serious: No
  Sender: FDA-Public Use
  Company Number: 1704368

PATIENT
  Age: 45 Year
  Sex: Female

DRUGS (5)
  1. (CARBOPLATIN) [Suspect]
     Indication: OVARIAN CANCER
     Dosage: 540MG, CYCLICAL, INTRAVENOUS
     Route: 042
     Dates: start: 20130419, end: 20130419
  2. (SOLDESAM) [Concomitant]
  3. (TRIMETON) [Concomitant]
  4. (ALOXI) [Concomitant]
  5. (PANTORC) [Concomitant]

REACTIONS (4)
  - Erythema [None]
  - Tachycardia [None]
  - Lip oedema [None]
  - Face oedema [None]
